FAERS Safety Report 5073199-4 (Version None)
Quarter: 2006Q3

REPORT INFORMATION
  Report Type: 
  Country: None (occurrence: None)
  Receive Date: 20060802
  Receipt Date: 20060724
  Transmission Date: 20061208
  Serious: Yes (Other)
  Sender: FDA-Public Use
  Company Number: US-2006-006114

PATIENT
  Age: 43 Year
  Sex: Female
  Weight: 61.2 kg

DRUGS (6)
  1. BETASERON [Suspect]
     Indication: RELAPSING-REMITTING MULTIPLE SCLEROSIS
     Dosage: 8 MIU, EVERY 2D, SUBCUTANEOUS
     Route: 058
     Dates: start: 20040825
  2. TOPAMAX [Concomitant]
  3. CLONAZEPAM [Concomitant]
  4. GABAPENTIN [Concomitant]
  5. ZOLOFT [Concomitant]
  6. PREVACID [Concomitant]

REACTIONS (8)
  - ASTHMA [None]
  - COGNITIVE DISORDER [None]
  - DRUG DOSE OMISSION [None]
  - IMPAIRED WORK ABILITY [None]
  - INJECTION SITE ERYTHEMA [None]
  - LOSS OF CONSCIOUSNESS [None]
  - MULTIPLE SCLEROSIS [None]
  - NUCLEAR MAGNETIC RESONANCE IMAGING BRAIN ABNORMAL [None]
